FAERS Safety Report 6823877-9 (Version None)
Quarter: 2010Q3

REPORT INFORMATION
  Report Type: 
  Country: None (occurrence: None)
  Receive Date: 20100708
  Receipt Date: 20060919
  Transmission Date: 20110219
  Serious: No
  Sender: FDA-Public Use
  Company Number: US-PFIZER INC-2006114060

PATIENT
  Sex: Male
  Weight: 84.37 kg

DRUGS (11)
  1. CHANTIX [Suspect]
     Indication: SMOKING CESSATION THERAPY
     Route: 048
     Dates: start: 20060901
  2. ALCOHOL [Interacting]
  3. FOLIC ACID [Concomitant]
     Route: 048
  4. PLAVIX [Concomitant]
     Route: 048
  5. ATACAND [Concomitant]
     Route: 048
  6. MONTELUKAST SODIUM [Concomitant]
     Route: 048
  7. ACETYLSALICYLIC ACID [Concomitant]
     Route: 048
  8. NASONEX [Concomitant]
  9. COREG [Concomitant]
     Route: 048
  10. ALPRAZOLAM [Concomitant]
     Route: 048
  11. NEXIUM [Concomitant]
     Route: 048

REACTIONS (4)
  - DRUG INTERACTION [None]
  - EMOTIONAL DISORDER [None]
  - FLATULENCE [None]
  - UNEVALUABLE EVENT [None]
